FAERS Safety Report 7994288-8 (Version None)
Quarter: 2011Q4

REPORT INFORMATION
  Report Type: 
  Country: None (occurrence: None)
  Receive Date: 20111220
  Receipt Date: 20111215
  Transmission Date: 20120403
  Serious: Yes (Death, Other)
  Sender: FDA-Public Use
  Company Number: JP-JNJFOC-20111204757

PATIENT
  Age: 81 Year
  Sex: Male

DRUGS (2)
  1. FENTANYL-100 [Suspect]
     Route: 062
     Dates: end: 20111205
  2. FENTANYL-100 [Suspect]
     Indication: PAIN
     Route: 062
     Dates: start: 20111206

REACTIONS (3)
  - SEPSIS [None]
  - DEPRESSED LEVEL OF CONSCIOUSNESS [None]
  - CONDITION AGGRAVATED [None]
